FAERS Safety Report 9276330 (Version 1)
Quarter: 2012Q4

REPORT INFORMATION
  Report Type: Spontaneous
  Country: US (occurrence: None)
  Receive Date: 20121012
  Receipt Date: 20121012
  Transmission Date: 20130627
  Serious: Yes (Other)
  Sender: FDA-Public Use
  Company Number: US-1194320

PATIENT
  Age: 63 Year
  Sex: Male
  Weight: 92.99 kg

DRUGS (2)
  1. LATANOPROST 0.005 % OPHTHALMIC SOLUTION [Suspect]
     Dosage: (1 Gtt os)
     Route: 047
     Dates: start: 2012
  2. BRIMONIDINE TARTRATE [Suspect]
     Dosage: (1 Gtt  os)
     Route: 047
     Dates: start: 2012

REACTIONS (3)
  - Chest pain [None]
  - Extrasystoles [None]
  - Ocular hyperaemia [None]
